FAERS Safety Report 6934068-5 (Version None)
Quarter: 2010Q3

REPORT INFORMATION
  Report Type: 
  Country: None (occurrence: None)
  Receive Date: 20100820
  Receipt Date: 20100804
  Transmission Date: 20110219
  Serious: No
  Sender: FDA-Public Use
  Company Number: B0613453A

PATIENT
  Sex: Female
  Weight: 61 kg

DRUGS (1)
  1. RELENZA [Suspect]
     Indication: ANTIVIRAL PROPHYLAXIS
     Dosage: 10MG PER DAY
     Route: 055
     Dates: start: 20091202, end: 20091211

REACTIONS (1)
  - DRUG EXPOSURE DURING PREGNANCY [None]
